FAERS Safety Report 8099425-5 (Version None)
Quarter: 2012Q1

REPORT INFORMATION
  Report Type: 
  Country: None (occurrence: None)
  Receive Date: 20120129
  Receipt Date: 20111006
  Transmission Date: 20120608
  Serious: No
  Sender: FDA-Public Use
  Company Number: US-ABBOTT-11P-163-0861648-00

PATIENT
  Age: 77 Year
  Sex: Female

DRUGS (2)
  1. HUMIRA [Suspect]
     Indication: RHEUMATOID ARTHRITIS
     Dates: start: 20100401
  2. METOPROLOL TARTRATE [Concomitant]
     Indication: BLOOD PRESSURE

REACTIONS (5)
  - SKIN BURNING SENSATION [None]
  - RASH MACULO-PAPULAR [None]
  - RASH PRURITIC [None]
  - RASH ERYTHEMATOUS [None]
  - INJECTION SITE SWELLING [None]
